FAERS Safety Report 10131208 (Version 1)
Quarter: 2014Q2

REPORT INFORMATION
  Report Type: Spontaneous
  Country: US (occurrence: US)
  Receive Date: 20140428
  Receipt Date: 20140428
  Transmission Date: 20141212
  Serious: Yes (Disabling)
  Sender: FDA-Public Use
  Company Number: US-BEH-2014041986

PATIENT
  Sex: Female
  Weight: 54 kg

DRUGS (19)
  1. HIZENTRA [Suspect]
     Indication: IMMUNODEFICIENCY COMMON VARIABLE
     Route: 058
  2. BIAXIN [Concomitant]
  3. SINGULAIR [Concomitant]
  4. PLAQUENIL [Concomitant]
  5. CELEBREX [Concomitant]
  6. MARINOL [Concomitant]
  7. PREDNISONE [Concomitant]
  8. SYNTHROID [Concomitant]
  9. ASPIRIN [Concomitant]
  10. ZANTAC [Concomitant]
  11. ADVAIR [Concomitant]
  12. NEXIUM [Concomitant]
  13. KLOR-CON [Concomitant]
  14. CYTOMEL [Concomitant]
  15. DIPHENHYDRAMINE [Concomitant]
  16. LIDOCAINE/PRILOCAINE [Concomitant]
  17. EPI-PEN AUTOINJECTOR [Concomitant]
  18. SOLU-MEDROL [Concomitant]
  19. ENBREL [Concomitant]

REACTIONS (2)
  - Activities of daily living impaired [Unknown]
  - Skin reaction [Unknown]
